FAERS Safety Report 21400459 (Version 2)
Quarter: 2022Q4

REPORT INFORMATION
  Report Type: Report from Study
  Country: US (occurrence: US)
  Receive Date: 20221003
  Receipt Date: 20221007
  Transmission Date: 20230113
  Serious: No
  Sender: FDA-Public Use
  Company Number: US-ABBVIE-4134343

PATIENT
  Age: 58 Year
  Sex: Female

DRUGS (1)
  1. RINVOQ [Suspect]
     Active Substance: UPADACITINIB
     Indication: Rheumatoid arthritis
     Route: 048

REACTIONS (4)
  - Contusion [Recovered/Resolved]
  - Vomiting [Not Recovered/Not Resolved]
  - Pharyngeal ulceration [Unknown]
  - Dry mouth [Unknown]

NARRATIVE: CASE EVENT DATE: 20220701
